FAERS Safety Report 10181590 (Version 3)
Quarter: 2014Q2

REPORT INFORMATION
  Report Type: Spontaneous
  Country: GB (occurrence: GB)
  Receive Date: 20140519
  Receipt Date: 20140528
  Transmission Date: 20141212
  Serious: Yes (Hospitalization, Other)
  Sender: FDA-Public Use
  Company Number: GB-PFIZER INC-2014136693

PATIENT
  Age: 46 Year
  Sex: Male

DRUGS (1)
  1. SUMATRIPTAN SUCCINATE [Suspect]
     Indication: MIGRAINE
     Dosage: 50 MG (ROUGHLY 3 SUMATRIPTAN 50MG A MONTH)
     Route: 065

REACTIONS (2)
  - Adrenal disorder [Unknown]
  - Wolff-Parkinson-White syndrome [Unknown]
